FAERS Safety Report 17657489 (Version 1)
Quarter: 2020Q2

REPORT INFORMATION
  Report Type: Spontaneous
  Country: SE (occurrence: SE)
  Receive Date: 20200410
  Receipt Date: 20200410
  Transmission Date: 20200713
  Serious: Yes (Other)
  Sender: FDA-Public Use
  Company Number: SE-ALLERGAN-2015159US

PATIENT
  Sex: Female
  Weight: 64 kg

DRUGS (1)
  1. ESCITALOPRAM OXALATE - BP [Suspect]
     Active Substance: ESCITALOPRAM OXALATE
     Indication: FATIGUE
     Route: 065
     Dates: start: 201106, end: 201405

REACTIONS (7)
  - Withdrawal syndrome [Recovering/Resolving]
  - Fatigue [Recovered/Resolved]
  - Product use in unapproved indication [Unknown]
  - Panic attack [Recovered/Resolved]
  - Palpitations [Recovered/Resolved]
  - Dyspnoea [Recovered/Resolved]
  - Oral pruritus [Recovering/Resolving]

NARRATIVE: CASE EVENT DATE: 201106
